FAERS Safety Report 4650312-1 (Version None)
Quarter: 2005Q2

REPORT INFORMATION
  Report Type: 
  Country: None (occurrence: None)
  Receive Date: 20050428
  Receipt Date: 20050419
  Transmission Date: 20051028
  Serious: Yes (Other)
  Sender: FDA-Public Use
  Company Number: 213914

PATIENT
  Age: 16 Year
  Sex: 0

DRUGS (1)
  1. NUTROPIN AQ [Suspect]
     Indication: GROWTH HORMONE DEFICIENCY
     Dosage: 2.6 MG, QD, SUBCUTANEOUS
     Route: 058
     Dates: start: 19980827, end: 20030710

REACTIONS (3)
  - ANAPLASTIC ASTROCYTOMA [None]
  - BLINDNESS TRANSIENT [None]
  - HEADACHE [None]
